FAERS Safety Report 8502861-3 (Version None)
Quarter: 2012Q3

REPORT INFORMATION
  Report Type: 
  Country: None (occurrence: None)
  Receive Date: 20120711
  Receipt Date: 20120702
  Transmission Date: 20120928
  Serious: Yes (Other)
  Sender: FDA-Public Use
  Company Number: JP-VERTEX PHARMACEUTICALS INC.-AE-2012-009618

PATIENT
  Age: 63 Year
  Sex: Male

DRUGS (13)
  1. XYZAL [Concomitant]
     Route: 048
  2. SELBEX [Concomitant]
     Route: 048
     Dates: end: 20120508
  3. INCIVEK [Suspect]
     Route: 048
     Dates: start: 20120530, end: 20120531
  4. FAMOTIDINE [Concomitant]
     Route: 048
     Dates: start: 20120425
  5. REBETOL [Concomitant]
     Route: 048
     Dates: start: 20120523, end: 20120531
  6. EPINASTINE HYDROCHLORIDE [Concomitant]
     Route: 048
     Dates: start: 20120509
  7. INCIVEK [Suspect]
     Indication: HEPATITIS C
     Route: 048
     Dates: start: 20120404, end: 20120529
  8. REBETOL [Concomitant]
     Indication: HEPATITIS C
     Route: 048
     Dates: start: 20120404, end: 20120508
  9. REBETOL [Concomitant]
     Route: 048
     Dates: start: 20120509, end: 20120522
  10. WARFARIN SODIUM [Concomitant]
     Route: 048
  11. DIGOXIN [Concomitant]
     Route: 048
  12. PEG-INTRON [Concomitant]
     Indication: HEPATITIS C
     Route: 058
     Dates: start: 20120404, end: 20120530
  13. LENDORMIN [Concomitant]
     Route: 048

REACTIONS (3)
  - ANAEMIA [None]
  - OPTIC NERVE DISORDER [None]
  - PHOTOPHOBIA [None]
